FAERS Safety Report 6557011-X (Version None)
Quarter: 2010Q1

REPORT INFORMATION
  Report Type: 
  Country: None (occurrence: None)
  Receive Date: 20100128
  Receipt Date: 20100118
  Transmission Date: 20100710
  Serious: Yes (Hospitalization, Other)
  Sender: FDA-Public Use
  Company Number: BR-ABBOTT-09P-020-0600243-00

PATIENT
  Sex: Female
  Weight: 70 kg

DRUGS (9)
  1. HUMIRA [Suspect]
     Indication: RHEUMATOID ARTHRITIS
     Route: 058
  2. METFORMIN [Concomitant]
     Indication: PANCREATIC DISORDER
     Route: 048
     Dates: start: 20090701
  3. AMILORIDE HCL/HYDROCHLOORTHIAZIDE [Concomitant]
     Indication: HYPERTENSION
     Route: 048
  4. PROPRANOLOL [Concomitant]
     Indication: HYPERTENSION
     Route: 048
  5. DOMPERIDONE 10MG, DEFLAZACORT 7MG, FAMOTIDINE 40MG (MAGISTRAL FORMULA) [Concomitant]
     Indication: RHEUMATOID ARTHRITIS
     Route: 048
     Dates: start: 20070101
  6. PANTOPRAZOLE [Concomitant]
     Indication: GASTRIC DISORDER
     Route: 048
  7. PURAN T4 [Concomitant]
     Indication: HYPOTHYROIDISM
     Route: 048
  8. METHOTREXATE [Concomitant]
     Indication: RHEUMATOID ARTHRITIS
     Route: 030
  9. COLECALCIFEROL [Concomitant]
     Indication: BONE DISORDER
     Dosage: 7 DROPS PER WEEK

REACTIONS (23)
  - ARTHRALGIA [None]
  - ASTHENIA [None]
  - BLOOD GLUCOSE ABNORMAL [None]
  - BONE PAIN [None]
  - FATIGUE [None]
  - GAIT DISTURBANCE [None]
  - HEADACHE [None]
  - INJECTION SITE ERYTHEMA [None]
  - INJECTION SITE PAIN [None]
  - INJECTION SITE PRURITUS [None]
  - JAW CYST [None]
  - JAW FRACTURE [None]
  - JOINT DISLOCATION [None]
  - MALAISE [None]
  - MUSCULOSKELETAL PAIN [None]
  - OSTEONECROSIS [None]
  - PAIN [None]
  - PAIN IN EXTREMITY [None]
  - TOOTH DEPOSIT [None]
  - TOOTH EXTRACTION [None]
  - TOOTH FRACTURE [None]
  - WEIGHT DECREASED [None]
  - WISDOM TEETH REMOVAL [None]
